FAERS Safety Report 8334468-5 (Version None)
Quarter: 2012Q2

REPORT INFORMATION
  Report Type: 
  Country: None (occurrence: None)
  Receive Date: 20120503
  Receipt Date: 20120427
  Transmission Date: 20120825
  Serious: Yes (Other)
  Sender: FDA-Public Use
  Company Number: PHEH2012US005695

PATIENT
  Sex: Female

DRUGS (19)
  1. ACIPHEX [Concomitant]
     Dosage: UNK UKN, UNK
     Dates: start: 20110816
  2. PRAMIPEXOLE DIHYDROCHLORIDE [Concomitant]
     Dosage: 1 MG, QID
     Dates: start: 20090313
  3. PRISTIQ [Concomitant]
     Dosage: 1 DF, DAILY
     Dates: start: 20090913
  4. ACIPHEX [Concomitant]
     Dosage: 20 MG, UNK
     Route: 048
     Dates: start: 20071022
  5. FISH OIL [Concomitant]
     Dosage: UNK
     Dates: start: 20090913
  6. LISINOPRIL [Concomitant]
     Dosage: 1 DF, QD
     Route: 048
  7. CLONAZEPAM [Concomitant]
     Dosage: 1 MG, UNK
     Dates: start: 20110816
  8. CLONAZEPAM [Concomitant]
     Dosage: 0.5 MG, UNK
     Route: 048
     Dates: start: 20111024
  9. LIPITOR [Concomitant]
     Dosage: 10 MG, UNK
     Route: 048
     Dates: start: 20110816
  10. ANAFLEX [Concomitant]
     Dosage: 4 MG, UNK
     Dates: start: 20110816
  11. FOSAMAX PLUS D [Concomitant]
     Dosage: 2800 MG, UNK
     Route: 048
     Dates: start: 20110816
  12. ZANAFLEX [Concomitant]
  13. GILENYA [Suspect]
     Indication: MULTIPLE SCLEROSIS
     Dosage: 0.5 MG, QD
     Route: 048
     Dates: start: 20120228, end: 20120305
  14. PROVIGIL [Concomitant]
     Dosage: 20 MG, UNK
  15. ZYRTEC [Concomitant]
     Dosage: 10 MG, UNK
     Dates: start: 20110816
  16. CALCIUM CARBONATE [Concomitant]
     Dosage: UNK
     Dates: start: 20090913
  17. GILENYA [Suspect]
     Dosage: 0.5 MG, QD
     Route: 048
     Dates: start: 20120307
  18. BENADRYL [Concomitant]
     Dosage: UNK UKN, UNK
     Dates: start: 20110816
  19. SIMVASTATIN [Concomitant]
     Dosage: 1 DF, QHS
     Route: 048

REACTIONS (1)
  - CENTRAL NERVOUS SYSTEM LESION [None]
